FAERS Safety Report 8094573-8 (Version None)
Quarter: 2012Q1

REPORT INFORMATION
  Report Type: 
  Country: None (occurrence: None)
  Receive Date: 20120131
  Receipt Date: 20120118
  Transmission Date: 20120608
  Serious: No
  Sender: FDA-Public Use
  Company Number: CO-SANOFI-AVENTIS-2012SA004483

PATIENT
  Age: 45 Year
  Sex: Female

DRUGS (3)
  1. PREDNISONE TAB [Concomitant]
     Route: 048
  2. ARAVA [Suspect]
     Indication: RHEUMATOID ARTHRITIS
     Route: 048
     Dates: start: 20100101, end: 20120111
  3. PREDNISONE TAB [Concomitant]
     Indication: RHEUMATOID ARTHRITIS
     Route: 048
     Dates: start: 20000101

REACTIONS (1)
  - MATERNAL EXPOSURE DURING PREGNANCY [None]
